FAERS Safety Report 18192826 (Version 1)
Quarter: 2020Q3

REPORT INFORMATION
  Report Type: Spontaneous
  Country: US (occurrence: US)
  Receive Date: 20200825
  Receipt Date: 20200825
  Transmission Date: 20201103
  Serious: Yes (Disabling)
  Sender: FDA-Public Use
  Company Number: None

PATIENT
  Age: 23 Year
  Sex: Male
  Weight: 161 kg

DRUGS (4)
  1. NAPROXEN. [Concomitant]
     Active Substance: NAPROXEN
  2. VYEPTI [Suspect]
     Active Substance: EPTINEZUMAB-JJMR
     Indication: MIGRAINE
     Dates: start: 20200715
  3. VISTARIL [Concomitant]
     Active Substance: HYDROXYZINE PAMOATE
  4. TIAZADINE [Concomitant]

REACTIONS (1)
  - Status migrainosus [None]

NARRATIVE: CASE EVENT DATE: 20200719
